FAERS Safety Report 8275747-X (Version None)
Quarter: 2012Q2

REPORT INFORMATION
  Report Type: 
  Country: None (occurrence: None)
  Receive Date: 20120410
  Receipt Date: 20120410
  Transmission Date: 20120825
  Serious: No
  Sender: FDA-Public Use
  Company Number: None

PATIENT
  Age: 67 Year
  Sex: Male
  Weight: 99.5 kg

DRUGS (3)
  1. FENOFIBRATE [Suspect]
  2. NIASPAN [Suspect]
  3. LIVALO [Suspect]
     Indication: HYPERLIPIDAEMIA
     Dosage: 4 MG EVERY DAY PO
     Route: 048
     Dates: start: 20101001, end: 20110413

REACTIONS (1)
  - BLOOD CREATINE PHOSPHOKINASE INCREASED [None]
